FAERS Safety Report 18027607 (Version 2)
Quarter: 2022Q1

REPORT INFORMATION
  Report Type: Spontaneous
  Country: CA (occurrence: CA)
  Receive Date: 20200716
  Receipt Date: 20220121
  Transmission Date: 20220423
  Serious: Yes (Other)
  Sender: FDA-Public Use
  Company Number: CA-PFIZER INC-2020270151

PATIENT
  Age: 63 Year
  Sex: Male

DRUGS (1)
  1. VYNDAQEL [Suspect]
     Active Substance: TAFAMIDIS MEGLUMINE
     Indication: Cardiac amyloidosis
     Dosage: 80 MG, DAILY
     Route: 048
     Dates: start: 20190906

REACTIONS (7)
  - Chronic kidney disease [Unknown]
  - Carpal tunnel syndrome [Unknown]
  - Peripheral venous disease [Unknown]
  - Hypertension [Unknown]
  - Dyslipidaemia [Unknown]
  - Sleep apnoea syndrome [Unknown]
  - Obesity [Unknown]
